FAERS Safety Report 5249620-5 (Version None)
Quarter: 2007Q1

REPORT INFORMATION
  Report Type: 
  Country: None (occurrence: None)
  Receive Date: 20070228
  Receipt Date: 20060516
  Transmission Date: 20070707
  Serious: No
  Sender: FDA-Public Use
  Company Number: US-GLAXOSMITHKLINE-A0604372A

PATIENT
  Sex: Female

DRUGS (3)
  1. IMITREX [Suspect]
     Indication: MIGRAINE
     Route: 030
  2. IMITREX [Suspect]
     Route: 048
  3. IMITREX [Suspect]
     Route: 048

REACTIONS (3)
  - INJECTION SITE DISCOMFORT [None]
  - THERAPEUTIC RESPONSE DELAYED [None]
  - VOMITING [None]
